FAERS Safety Report 6756504-X (Version None)
Quarter: 2010Q2

REPORT INFORMATION
  Report Type: 
  Country: None (occurrence: None)
  Receive Date: 20100604
  Receipt Date: 20100527
  Transmission Date: 20101027
  Serious: Yes (Other)
  Sender: FDA-Public Use
  Company Number: B0643430A

PATIENT
  Sex: Female

DRUGS (1)
  1. LEUKERAN [Suspect]
     Route: 065
     Dates: end: 20090424

REACTIONS (1)
  - MYELODYSPLASTIC SYNDROME [None]
